FAERS Safety Report 9223598 (Version 1)
Quarter: 2013Q2

REPORT INFORMATION
  Report Type: Spontaneous
  Country: CN (occurrence: CN)
  Receive Date: 20130410
  Receipt Date: 20130410
  Transmission Date: 20140414
  Serious: Yes (Other)
  Sender: FDA-Public Use
  Company Number: CN-ROXANE LABORATORIES, INC.-2013-RO-00464RO

PATIENT
  Age: 73 Year
  Sex: Female

DRUGS (3)
  1. CLOPIDOGREL [Suspect]
     Indication: PROPHYLAXIS
     Dosage: 75 MG
  2. AMLODIPINE [Concomitant]
     Indication: HYPERTENSION
     Dosage: 5 MG
  3. INSULINE GLARGINE [Concomitant]
     Indication: TYPE 2 DIABETES MELLITUS

REACTIONS (2)
  - Thrombocytopenia [Recovered/Resolved]
  - Gingival bleeding [Unknown]
